FAERS Safety Report 22087037 (Version 1)
Quarter: 2023Q1

REPORT INFORMATION
  Report Type: Spontaneous
  Country: CN (occurrence: CN)
  Receive Date: 20230313
  Receipt Date: 20230313
  Transmission Date: 20230417
  Serious: Yes (Other)
  Sender: FDA-Public Use
  Company Number: CN-ABBOTT-2023A-1360796

PATIENT
  Age: 56 Year
  Sex: Male
  Weight: 62 kg

DRUGS (1)
  1. FENOFIBRATE [Suspect]
     Active Substance: FENOFIBRATE
     Indication: Symptomatic treatment
     Dosage: UNIT DOSE + DAILY DOSE: 1 TABLET
     Route: 048
     Dates: start: 20220912, end: 20230216

REACTIONS (1)
  - Hepatic function abnormal [Recovering/Resolving]

NARRATIVE: CASE EVENT DATE: 20230216
